FAERS Safety Report 6315091-0 (Version None)
Quarter: 2009Q3

REPORT INFORMATION
  Report Type: 
  Country: None (occurrence: None)
  Receive Date: 20090818
  Receipt Date: 20090818
  Transmission Date: 20100115
  Serious: No
  Sender: FDA-Public Use
  Company Number: None

PATIENT
  Sex: Male

DRUGS (1)
  1. ^SPORT FEVER^ ACTIVE ANTI-PERSPIRANT (INVISIBLE SOLID) ADIDAS [Suspect]
     Indication: HYPERHIDROSIS

REACTIONS (8)
  - ACROCHORDON [None]
  - BRONCHITIS [None]
  - EXPIRED DRUG ADMINISTERED [None]
  - FATIGUE [None]
  - HEADACHE [None]
  - LYMPH NODE PAIN [None]
  - LYMPHADENOPATHY [None]
  - PYREXIA [None]
